FAERS Safety Report 17198035 (Version 1)
Quarter: 2019Q4

REPORT INFORMATION
  Report Type: Spontaneous
  Country: US (occurrence: US)
  Receive Date: 20191225
  Receipt Date: 20191225
  Transmission Date: 20200122
  Serious: No
  Sender: FDA-Public Use
  Company Number: US-SHIRE-US201944907

PATIENT
  Age: 73 Year
  Sex: Female

DRUGS (2)
  1. GATTEX [Suspect]
     Active Substance: TEDUGLUTIDE\WATER
     Dosage: 2.4 MILLIGRAM, 1X/DAY:QD
     Route: 058
     Dates: start: 20191205
  2. GATTEX [Suspect]
     Active Substance: TEDUGLUTIDE\WATER
     Indication: SHORT-BOWEL SYNDROME
     Dosage: 2.4 MILLIGRAM, 1X/DAY:QD
     Route: 058
     Dates: start: 20191205

REACTIONS (1)
  - Paraesthesia [Not Recovered/Not Resolved]
